FAERS Safety Report 4705777-3 (Version None)
Quarter: 2005Q2

REPORT INFORMATION
  Report Type: 
  Country: None (occurrence: None)
  Receive Date: 20050629
  Receipt Date: 20050617
  Transmission Date: 20051028
  Serious: Yes (Death)
  Sender: FDA-Public Use
  Company Number: DSA_26645_2005

PATIENT
  Age: 67 Year
  Sex: Female

DRUGS (5)
  1. TAVOR [Suspect]
     Dosage: 5 MG Q DAY PO
     Route: 048
     Dates: start: 19960101, end: 20041230
  2. DAPOTUM 5 [Suspect]
     Dosage: 20 MG Q DAY PO
     Route: 048
     Dates: start: 20041019, end: 20041230
  3. FLUPHENZINE [Suspect]
     Dosage: 150 MG Q DAY PO
     Route: 048
  4. PARKOPAN [Suspect]
     Dosage: 2 MG Q DAY PO
     Route: 048
     Dates: start: 20000101, end: 20041230
  5. TRUXAL [Suspect]
     Dosage: 150 MG Q DAY PO
     Route: 048
     Dates: start: 20040420, end: 20041230

REACTIONS (2)
  - HYPOTHERMIA [None]
  - SUDDEN CARDIAC DEATH [None]
